FAERS Safety Report 5483915-5 (Version None)
Quarter: 2007Q4

REPORT INFORMATION
  Report Type: 
  Country: None (occurrence: None)
  Receive Date: 20071012
  Receipt Date: 20071002
  Transmission Date: 20080405
  Serious: Yes (Death)
  Sender: FDA-Public Use
  Company Number: US-BRISTOL-MYERS SQUIBB COMPANY-13847884

PATIENT
  Age: 40 Year
  Sex: Female

DRUGS (16)
  1. ABATACEPT [Suspect]
     Indication: RHEUMATOID ARTHRITIS
     Route: 042
     Dates: start: 20040426, end: 20070628
  2. PREDNISONE [Concomitant]
     Dosage: 2MG ALTERNATING  WITH 2.5 MG EVERY OTHER DAY
     Dates: start: 20070217, end: 20070710
  3. CELECOXIB [Concomitant]
  4. VITAMIN CAP [Concomitant]
  5. CALCIUM [Concomitant]
     Dates: start: 20040303, end: 20070710
  6. FOLIC ACID [Concomitant]
     Dates: start: 20041118, end: 20070710
  7. DARVOCET [Concomitant]
     Dates: start: 20060121
  8. DECONSAL [Concomitant]
     Dates: start: 20070523
  9. TYLENOL SINUS [Concomitant]
     Dates: start: 20070523
  10. DEXTROMETHORPHAN+GUAIFENESIN+PSEUDOEPHEDRINE [Concomitant]
  11. METHOTREXATE [Concomitant]
     Dates: start: 20050527, end: 20070710
  12. SULFASALAZINE [Concomitant]
  13. TRIPHASIL-28 [Concomitant]
  14. VITAMIN D [Concomitant]
  15. AZULFIDINE [Concomitant]
     Dates: start: 20040624, end: 20070710
  16. TRIVORA-21 [Concomitant]
     Dates: start: 19930101, end: 20070710

REACTIONS (6)
  - ASPERGILLOSIS [None]
  - CARDIOPULMONARY FAILURE [None]
  - HUMAN EHRLICHIOSIS [None]
  - PNEUMONIA [None]
  - RENAL FAILURE [None]
  - RESPIRATORY FAILURE [None]
